FAERS Safety Report 11004878 (Version 1)
Quarter: 2015Q2

REPORT INFORMATION
  Report Type: Spontaneous
  Country: CN (occurrence: CN)
  Receive Date: 20150409
  Receipt Date: 20150409
  Transmission Date: 20150821
  Serious: Yes (Other)
  Sender: FDA-Public Use
  Company Number: CN-MYLANLABS-2015M1011508

PATIENT

DRUGS (5)
  1. FLUOROURACIL. [Suspect]
     Active Substance: FLUOROURACIL
     Dosage: CONTINUOUS IV 4.0 FOR 46H; REPEATED EVERY 2W; 8 CYCLES
     Route: 042
     Dates: end: 20110521
  2. FOLINIC ACID [Suspect]
     Active Substance: LEUCOVORIN
     Indication: RECTAL CANCER STAGE IV
     Dosage: 0.68 ON D1; REPEATED EVERY 2W; 8 CYCLES
     Route: 040
     Dates: end: 20110521
  3. BEVACIZUMAB [Suspect]
     Active Substance: BEVACIZUMAB
     Indication: RECTAL CANCER STAGE IV
     Dosage: 300MG ON D1; REPEATED EVERY 2W; 8 CYCLES
     Route: 041
     Dates: end: 20110521
  4. OXALIPLATIN. [Suspect]
     Active Substance: OXALIPLATIN
     Indication: RECTAL CANCER STAGE IV
     Dosage: 150MG ON D1; REPEATED EVERY 2W; 8 CYCLES
     Route: 041
     Dates: end: 20110521
  5. FLUOROURACIL. [Suspect]
     Active Substance: FLUOROURACIL
     Indication: RECTAL CANCER STAGE IV
     Dosage: 0.68 ON D1; REPEATED EVERY 2W; 8 CYCLES
     Route: 040
     Dates: end: 20110521

REACTIONS (1)
  - Posterior reversible encephalopathy syndrome [Recovering/Resolving]

NARRATIVE: CASE EVENT DATE: 20110604
